FAERS Safety Report 8258358-1 (Version None)
Quarter: 2012Q2

REPORT INFORMATION
  Report Type: 
  Country: None (occurrence: None)
  Receive Date: 20120404
  Receipt Date: 20120328
  Transmission Date: 20120825
  Serious: Yes (Life-Threatening, Hospitalization, Other)
  Sender: FDA-Public Use
  Company Number: GB-AMGEN-GBRCT2011037353

PATIENT
  Age: 47 Year
  Sex: Male
  Weight: 107 kg

DRUGS (10)
  1. LEVOMEPROMAZINE [Concomitant]
     Dosage: 13 MUG, UNK
     Route: 048
     Dates: start: 20110506
  2. FLUCONAZOLE [Concomitant]
     Dosage: 100 MG, UNK
     Route: 048
     Dates: start: 20110506
  3. CISPLATIN [Concomitant]
     Dosage: 46 MG, UNK
     Dates: start: 20110304
  4. NEULASTA [Suspect]
     Indication: PRODUCT USED FOR UNKNOWN INDICATION
     Dosage: 6 MG, UNK
     Dates: start: 20110310, end: 20110512
  5. GEMCITABINE [Concomitant]
     Dosage: 2774 MG, UNK
     Dates: start: 20110304
  6. ONDANSETRON [Concomitant]
     Dosage: 16 MG, UNK
     Route: 048
     Dates: start: 20110506
  7. IFOSFAMIDE [Concomitant]
     Dosage: 2320 MG, UNK
     Dates: start: 20110305
  8. PACLITAXEL [Concomitant]
     Dosage: 402 MG, UNK
     Dates: start: 20110304
  9. DOMPERIDONE [Concomitant]
     Dosage: 80 MG, UNK
     Route: 048
     Dates: start: 20110506
  10. OMEPRAZOLE [Concomitant]
     Dosage: 20 MG, UNK
     Route: 048
     Dates: start: 20110517

REACTIONS (4)
  - ANAEMIA [None]
  - THROMBOCYTOPENIA [None]
  - NEUTROPENIA [None]
  - FATIGUE [None]
